FAERS Safety Report 8102739 (Version 3)
Quarter: 2013Q3

REPORT INFORMATION
  Report Type: Spontaneous
  Country: FR (occurrence: FR)
  Receive Date: 20110823
  Receipt Date: 20130924
  Transmission Date: 20140515
  Serious: Yes (Hospitalization)
  Sender: FDA-Public Use
  Company Number: FR-PFIZER INC-2011190644

PATIENT
  Age: 88 Year
  Sex: Female

DRUGS (7)
  1. TAHOR [Suspect]
     Dosage: UNK
  2. KEPPRA [Suspect]
     Dosage: 500 MG, 2X/DAY
     Route: 048
     Dates: start: 2009, end: 201104
  3. NITRIDERM TTS [Concomitant]
     Dosage: 10 MG, EVERY 24 HOURS
  4. LASILIX [Concomitant]
     Dosage: 20 MG, UNK
  5. BISOPROLOL FUMARATE [Concomitant]
  6. KARDEGIC [Concomitant]
     Dosage: 75 MG, UNK
  7. DIFFU K [Concomitant]

REACTIONS (5)
  - Liver injury [Recovered/Resolved]
  - Thrombocytopenia [Not Recovered/Not Resolved]
  - Fall [Unknown]
  - Confusional state [Unknown]
  - Antinuclear antibody positive [Unknown]
